FAERS Safety Report 9119114 (Version 1)
Quarter: 2013Q1

REPORT INFORMATION
  Report Type: Spontaneous
  Country: US (occurrence: None)
  Receive Date: 20130221
  Receipt Date: 20130221
  Transmission Date: 20140127
  Serious: No
  Sender: FDA-Public Use
  Company Number: None

PATIENT
  Age: 74 Year
  Sex: Male
  Weight: 78.93 kg

DRUGS (1)
  1. NITROGLYCERIN TRANSDERMAL PATCH 0.1MG/HR [Suspect]
     Indication: RASH
     Dosage: 0.1MG/HR DAYTIME ONLY-1 TRANSDERMAL
     Route: 062
     Dates: start: 20121114, end: 20131214

REACTIONS (2)
  - Device leakage [None]
  - Application site rash [None]
